FAERS Safety Report 18986650 (Version 1)
Quarter: 2021Q1

REPORT INFORMATION
  Report Type: Spontaneous
  Country: US (occurrence: US)
  Receive Date: 20210309
  Receipt Date: 20210309
  Transmission Date: 20210420
  Serious: Yes (Life-Threatening, Disabling, Other)
  Sender: FDA-Public Use
  Company Number: US-NOVOPROD-792100

PATIENT
  Sex: Male

DRUGS (1)
  1. NOVOLIN N [Suspect]
     Active Substance: INSULIN HUMAN
     Indication: PRODUCT USED FOR UNKNOWN INDICATION
     Dosage: UNK
     Route: 065

REACTIONS (10)
  - Renal failure [Not Recovered/Not Resolved]
  - Blood glucose decreased [Unknown]
  - Brain injury [Not Recovered/Not Resolved]
  - Hypersomnia [Not Recovered/Not Resolved]
  - Blood glucose fluctuation [Not Recovered/Not Resolved]
  - Pulmonary oedema [Unknown]
  - Fall [Unknown]
  - Myocardial infarction [Not Recovered/Not Resolved]
  - Blood glucose increased [Unknown]
  - Product dose omission in error [Unknown]

NARRATIVE: CASE EVENT DATE: 2007
